FAERS Safety Report 9671938 (Version 1)
Quarter: 2013Q4

REPORT INFORMATION
  Report Type: Spontaneous
  Country: US (occurrence: US)
  Receive Date: 20131106
  Receipt Date: 20131106
  Transmission Date: 20140711
  Serious: No
  Sender: FDA-Public Use
  Company Number: US-ENDO PHARMACEUTICALS INC.-LISI20110034

PATIENT
  Age: 66 Year
  Sex: Male

DRUGS (6)
  1. LISINOPRIL TABLETS 40MG [Suspect]
     Indication: HYPERTENSION
     Route: 048
     Dates: start: 20101101, end: 20101220
  2. GEMFIBROZIL [Concomitant]
  3. SIMVASTATIN [Concomitant]
  4. METOPROLOL [Concomitant]
  5. FISH OIL [Concomitant]
  6. MULTIVITAMINS [Concomitant]

REACTIONS (5)
  - Pollakiuria [Recovering/Resolving]
  - Headache [Recovering/Resolving]
  - Nausea [Recovering/Resolving]
  - Drug ineffective [Recovering/Resolving]
  - Constipation [None]
